FAERS Safety Report 18427893 (Version 1)
Quarter: 2020Q4

REPORT INFORMATION
  Report Type: Spontaneous
  Country: GB (occurrence: GB)
  Receive Date: 20201026
  Receipt Date: 20201026
  Transmission Date: 20210114
  Serious: Yes (Hospitalization)
  Sender: FDA-Public Use
  Company Number: GB-009507513-2010GBR006994

PATIENT
  Age: 78 Year

DRUGS (10)
  1. LISINOPRIL. [Suspect]
     Active Substance: LISINOPRIL
     Dosage: 5 MILLIGRAM, QD, STOPPED BY GENERAL PRACTITIONER IN RUN UP TO ADMISSION
     Route: 048
     Dates: end: 202009
  2. LANSOPRAZOLE. [Concomitant]
     Active Substance: LANSOPRAZOLE
     Dosage: 60 MILLIGRAM, QD, GASTRO-RESISTANT CAPSULE
     Route: 048
  3. DIORALYTE [Concomitant]
     Active Substance: CITRIC ACID MONOHYDRATE\DEXTROSE\POTASSIUM CATION\SODIUM CHLORIDE
     Dosage: 10 DOSAGE FORM, IN 1 LITRE TO BE SIPPED THROUGHOUT THE DAY.
     Route: 048
  4. SODIUM ALGINATE [Concomitant]
     Active Substance: SODIUM ALGINATE
     Dosage: PRN (AS NECESSARY), 10-20ML FOUR TIMES DAILY.
     Route: 048
  5. POTASSIUM CARBONATE [Concomitant]
     Active Substance: POTASSIUM CARBONATE
     Dosage: PRN (AS NECESSARY), 10-20ML FOUR TIMES DAILY.
     Route: 048
  6. LOPERAMIDE [Concomitant]
     Active Substance: LOPERAMIDE
     Dosage: 16 MILLIGRAM, QD
     Route: 048
  7. CALCIUM CARBONATE (+) CHOLECALCIFEROL [Concomitant]
     Active Substance: CALCIUM CARBONATE\CHOLECALCIFEROL
     Dosage: 2 DOSAGE FORM, QD, 400UNIT/1.5G
     Route: 048
  8. CODEINE [Concomitant]
     Active Substance: CODEINE
     Dosage: 240 MILLIGRAM, QD
     Route: 048
  9. ATORVASTATIN [Concomitant]
     Active Substance: ATORVASTATIN
     Dosage: 10 MILLIGRAM, QD
     Route: 048
  10. PREDNISOLONE. [Concomitant]
     Active Substance: PREDNISOLONE
     Dosage: 5MG AND 10MG ALTERNATE DAYS.
     Route: 048

REACTIONS (2)
  - Acute kidney injury [Recovering/Resolving]
  - Hypophagia [Unknown]

NARRATIVE: CASE EVENT DATE: 20200922
